FAERS Safety Report 20662958 (Version 1)
Quarter: 2022Q2

REPORT INFORMATION
  Report Type: Spontaneous
  Country: GB (occurrence: GB)
  Receive Date: 20220401
  Receipt Date: 20220401
  Transmission Date: 20220721
  Serious: Yes (Life-Threatening, Other)
  Sender: FDA-Public Use
  Company Number: GB-MHRA-MED-202203211400316830-1XXLS

PATIENT
  Age: 46 Year
  Sex: Male
  Weight: 98 kg

DRUGS (4)
  1. ATORVASTATIN [Suspect]
     Active Substance: ATORVASTATIN
     Indication: Adverse drug reaction
     Dosage: 40 MILLIGRAM DAILY; IN THE EVENING; ;
     Dates: start: 20210518, end: 20210601
  2. ATORVASTATIN [Suspect]
     Active Substance: ATORVASTATIN
     Indication: Blood cholesterol increased
  3. ATORVASTATIN [Suspect]
     Active Substance: ATORVASTATIN
     Indication: Type 2 diabetes mellitus
  4. RELONCHEM METFORMIN [Concomitant]
     Indication: Glucose tolerance impaired
     Dosage: STRENGTH : 500 MG
     Dates: start: 20210519, end: 20210602

REACTIONS (5)
  - Muscular weakness [Recovered/Resolved with Sequelae]
  - Asthenia [Recovered/Resolved]
  - Chromaturia [Recovered/Resolved]
  - Decreased appetite [Recovered/Resolved]
  - Pyrexia [Recovered/Resolved]

NARRATIVE: CASE EVENT DATE: 20210527
